FAERS Safety Report 25093070 (Version 1)
Quarter: 2025Q1

REPORT INFORMATION
  Report Type: Other
  Country: FR (occurrence: FR)
  Receive Date: 20250319
  Receipt Date: 20250319
  Transmission Date: 20250409
  Serious: Yes (Hospitalization)
  Sender: ZYDUS PHARM
  Company Number: None

PATIENT

DRUGS (2)
  1. ACETAMINOPHEN [Suspect]
     Active Substance: ACETAMINOPHEN
     Indication: Toothache
     Route: 048
     Dates: start: 20250218, end: 20250218
  2. PREDNISOLONE [Suspect]
     Active Substance: PREDNISOLONE
     Indication: Toothache
     Route: 048
     Dates: start: 20250218, end: 20250218

REACTIONS (3)
  - Abdominal pain [Unknown]
  - Vomiting [Recovered/Resolved]
  - Accidental poisoning [Recovered/Resolved]

NARRATIVE: CASE EVENT DATE: 20250218
